APPROVED DRUG PRODUCT: PROPRANOLOL HYDROCHLORIDE
Active Ingredient: PROPRANOLOL HYDROCHLORIDE
Strength: 80MG
Dosage Form/Route: TABLET;ORAL
Application: A070551 | Product #001
Applicant: WATSON LABORATORIES INC
Approved: Jul 10, 1986 | RLD: No | RS: No | Type: DISCN